FAERS Safety Report 12847876 (Version 1)
Quarter: 2016Q4

REPORT INFORMATION
  Report Type: Spontaneous
  Country: US (occurrence: US)
  Receive Date: 20161014
  Receipt Date: 20161014
  Transmission Date: 20170207
  Serious: No
  Sender: FDA-Public Use
  Company Number: US-FRI-1000085943

PATIENT

DRUGS (3)
  1. ABILIFY [Concomitant]
     Active Substance: ARIPIPRAZOLE
     Dosage: 15 MG, QD
  2. VRAYLAR [Suspect]
     Active Substance: CARIPRAZINE
     Dosage: 3 MG, QD
  3. ABILIFY [Concomitant]
     Active Substance: ARIPIPRAZOLE
     Dosage: 10 MG, QD

REACTIONS (10)
  - Memory impairment [Unknown]
  - Anhedonia [Unknown]
  - Dysphoria [Unknown]
  - Depression [Unknown]
  - Decreased interest [Unknown]
  - Feeling abnormal [Unknown]
  - Slow speech [Unknown]
  - Cognitive disorder [Unknown]
  - Apathy [Unknown]
  - Bradyphrenia [Unknown]
